FAERS Safety Report 7002875-9 (Version None)
Quarter: 2010Q3

REPORT INFORMATION
  Report Type: 
  Country: None (occurrence: None)
  Receive Date: 20100902
  Receipt Date: 20100621
  Transmission Date: 20110219
  Serious: Yes (Other)
  Sender: FDA-Public Use
  Company Number: 238565USA

PATIENT
  Sex: Female

DRUGS (1)
  1. METOCLOPRAMIDE [Suspect]
     Dates: start: 20040701, end: 20050301

REACTIONS (2)
  - EXTRAPYRAMIDAL DISORDER [None]
  - TREMOR [None]
